FAERS Safety Report 8179743-2 (Version None)
Quarter: 2012Q1

REPORT INFORMATION
  Report Type: 
  Country: None (occurrence: None)
  Receive Date: 20120302
  Receipt Date: 20120224
  Transmission Date: 20120608
  Serious: Yes (Hospitalization, Other)
  Sender: FDA-Public Use
  Company Number: US-BAYER-2011-069854

PATIENT
  Age: 27 Year
  Sex: Female
  Weight: 58 kg

DRUGS (7)
  1. YAZ [Suspect]
     Indication: DYSMENORRHOEA
  2. YAZ [Suspect]
     Indication: CONTRACEPTION
  3. NSAID'S [Concomitant]
     Dosage: UNK
     Dates: start: 20090803
  4. YAZ [Suspect]
     Indication: MENORRHAGIA
  5. ALBUTEROL [Concomitant]
     Dosage: UNK
     Dates: start: 20090803
  6. YAZ [Suspect]
     Indication: PREMENSTRUAL SYNDROME
     Dosage: UNK
     Dates: start: 20071019, end: 20090803
  7. LEVAQUIN [Concomitant]
     Dosage: 500, QD
     Dates: start: 20090803

REACTIONS (4)
  - PAIN [None]
  - PULMONARY FIBROSIS [None]
  - PAINFUL RESPIRATION [None]
  - PULMONARY EMBOLISM [None]
